FAERS Safety Report 8020222-0 (Version None)
Quarter: 2012Q1

REPORT INFORMATION
  Report Type: 
  Country: None (occurrence: None)
  Receive Date: 20120103
  Receipt Date: 20111229
  Transmission Date: 20120608
  Serious: No
  Sender: FDA-Public Use
  Company Number: US-BAYER-2012-000340

PATIENT
  Sex: Male

DRUGS (2)
  1. ALEVE (CAPLET) [Suspect]
     Dosage: 1 TAB OTHER FREQUENCY
     Route: 048
     Dates: start: 20111222, end: 20111223
  2. IBUPROFEN (ADVIL) [Concomitant]
     Dosage: UNK
     Route: 048
     Dates: start: 20111222

REACTIONS (3)
  - RASH GENERALISED [None]
  - DERMATITIS CONTACT [None]
  - RASH PAPULAR [None]
